FAERS Safety Report 11220064 (Version 1)
Quarter: 2015Q2

REPORT INFORMATION
  Report Type: Spontaneous
  Country: DK (occurrence: DK)
  Receive Date: 20150625
  Receipt Date: 20150625
  Transmission Date: 20150821
  Serious: Yes (Disabling)
  Sender: FDA-Public Use
  Company Number: PHHY2015DK071512

PATIENT
  Age: 33 Year
  Sex: Female

DRUGS (1)
  1. GESTONETTE [Suspect]
     Active Substance: ETHINYL ESTRADIOL\GESTODENE
     Indication: CONTRACEPTION
     Route: 048

REACTIONS (11)
  - Tendon pain [Unknown]
  - Pain in extremity [Not Recovered/Not Resolved]
  - Peripheral swelling [Not Recovered/Not Resolved]
  - Muscle fatigue [Not Recovered/Not Resolved]
  - Arthralgia [Unknown]
  - Erythema [Unknown]
  - Skin reaction [Not Recovered/Not Resolved]
  - Back pain [Unknown]
  - Deep vein thrombosis [Recovered/Resolved with Sequelae]
  - Joint swelling [Unknown]
  - Anxiety [Not Recovered/Not Resolved]

NARRATIVE: CASE EVENT DATE: 20120604
